FAERS Safety Report 8242961-9 (Version None)
Quarter: 2012Q1

REPORT INFORMATION
  Report Type: 
  Country: None (occurrence: None)
  Receive Date: 20120329
  Receipt Date: 20120322
  Transmission Date: 20120608
  Serious: Yes (Other)
  Sender: FDA-Public Use
  Company Number: US-JNJFOC-20100704843

PATIENT
  Sex: Male
  Weight: 67.9 kg

DRUGS (14)
  1. HEPARIN [Concomitant]
     Indication: ILL-DEFINED DISORDER
     Route: 058
  2. LEVAQUIN [Suspect]
     Indication: ABDOMINAL INFECTION
     Route: 042
  3. OCTREOTIDE ACETATE [Concomitant]
     Indication: ILL-DEFINED DISORDER
     Route: 058
  4. NOVOLIN R [Concomitant]
     Indication: ILL-DEFINED DISORDER
     Route: 058
  5. ZOFRAN [Concomitant]
     Indication: ILL-DEFINED DISORDER
     Route: 042
  6. HYDROCHLORTHIAZID [Concomitant]
     Indication: ILL-DEFINED DISORDER
     Route: 048
  7. FAMOTIDINE [Concomitant]
     Indication: ILL-DEFINED DISORDER
     Route: 042
  8. METRONIDAZOLE [Concomitant]
     Indication: ILL-DEFINED DISORDER
     Route: 042
  9. LEVAQUIN [Suspect]
     Indication: SURGERY
     Route: 048
     Dates: start: 20071201
  10. VANCOMYCIN [Concomitant]
     Indication: BACTERIAL INFECTION
     Route: 065
  11. LORTAB [Concomitant]
     Indication: ILL-DEFINED DISORDER
     Route: 048
  12. HYDROMORPHONE HCL [Concomitant]
     Indication: ILL-DEFINED DISORDER
     Route: 042
  13. MORPHINE [Concomitant]
     Indication: ILL-DEFINED DISORDER
     Route: 042
  14. ERTAPENEM [Concomitant]
     Indication: ILL-DEFINED DISORDER
     Route: 042

REACTIONS (4)
  - JOINT INJURY [None]
  - TENDON RUPTURE [None]
  - ARTHRITIS [None]
  - ROTATOR CUFF SYNDROME [None]
